FAERS Safety Report 6872936-3 (Version None)
Quarter: 2010Q3

REPORT INFORMATION
  Report Type: 
  Country: None (occurrence: None)
  Receive Date: 20100723
  Receipt Date: 20081103
  Transmission Date: 20110219
  Serious: No
  Sender: FDA-Public Use
  Company Number: US-PFIZER INC-2008093793

PATIENT
  Sex: Female
  Weight: 63.636 kg

DRUGS (2)
  1. CHANTIX [Suspect]
     Indication: SMOKING CESSATION THERAPY
     Dates: start: 20081003
  2. LANTUS [Concomitant]
     Indication: DIABETES MELLITUS

REACTIONS (5)
  - DIARRHOEA [None]
  - INSOMNIA [None]
  - MUSCLE SPASMS [None]
  - NIGHTMARE [None]
  - VOMITING [None]
